FAERS Safety Report 18933355 (Version 2)
Quarter: 2021Q1

REPORT INFORMATION
  Report Type: Spontaneous
  Country: SK (occurrence: SK)
  Receive Date: 20210224
  Receipt Date: 20210226
  Transmission Date: 20210420
  Serious: Yes (Other)
  Sender: FDA-Public Use
  Company Number: SK-ROCHE-2758908

PATIENT
  Sex: Male

DRUGS (4)
  1. ZELBORAF [Suspect]
     Active Substance: VEMURAFENIB
     Indication: BRAF GENE MUTATION
     Dosage: 3 TABLETS IN THE MORNING AND EVENING
     Route: 048
  2. COTELLIC [Suspect]
     Active Substance: COBIMETINIB
     Indication: METASTATIC MALIGNANT MELANOMA
     Dosage: 3 TABLETS IN THE MORNING
     Route: 048
     Dates: start: 20210116
  3. ZELBORAF [Suspect]
     Active Substance: VEMURAFENIB
     Indication: METASTATIC MALIGNANT MELANOMA
     Dosage: 4 TABLETS IN THE MORNING AND EVENING
     Route: 048
     Dates: start: 20210116
  4. COTELLIC [Suspect]
     Active Substance: COBIMETINIB
     Indication: BRAF GENE MUTATION
     Dosage: 2 TABLETS IN THE MORNING
     Route: 048

REACTIONS (2)
  - Rash [Unknown]
  - Ocular hyperaemia [Unknown]
